FAERS Safety Report 6357060-0 (Version None)
Quarter: 2009Q3

REPORT INFORMATION
  Report Type: 
  Country: None (occurrence: None)
  Receive Date: 20090915
  Receipt Date: 20090904
  Transmission Date: 20100115
  Serious: Yes (Hospitalization)
  Sender: FDA-Public Use
  Company Number: FR-GILEAD-2009-0024045

PATIENT
  Age: 36 Year
  Sex: Male

DRUGS (2)
  1. TRUVADA [Suspect]
     Indication: DRUG USE FOR UNKNOWN INDICATION
     Dates: start: 20060901
  2. KALETRA [Concomitant]
     Dates: start: 20060901

REACTIONS (1)
  - NEPHROLITHIASIS [None]
